FAERS Safety Report 5986756-5 (Version None)
Quarter: 2008Q4

REPORT INFORMATION
  Report Type: 
  Country: None (occurrence: None)
  Receive Date: 20081209
  Receipt Date: 20081204
  Transmission Date: 20090506
  Serious: Yes (Other)
  Sender: FDA-Public Use
  Company Number: TR-JNJCH-2008056356

PATIENT
  Age: 45 Year
  Sex: Male

DRUGS (1)
  1. CHLORPHENIRAMINE/PARACETAMOL/PSEUDOEPHEDRINE [Suspect]
     Indication: MYALGIA
     Dosage: TEXT:UNSPECIFIED
     Route: 048

REACTIONS (4)
  - ACUTE CORONARY SYNDROME [None]
  - CHEST PAIN [None]
  - HYPOAESTHESIA [None]
  - HYPOTENSION [None]
